FAERS Safety Report 8336270-7 (Version None)
Quarter: 2012Q2

REPORT INFORMATION
  Report Type: 
  Country: None (occurrence: None)
  Receive Date: 20120501
  Receipt Date: 20120418
  Transmission Date: 20120825
  Serious: Yes (Other)
  Sender: FDA-Public Use
  Company Number: 2012SP020783

PATIENT
  Age: 3 Year
  Sex: Male

DRUGS (1)
  1. ISOCEF (CEFTIBUTEN /01166201/) [Suspect]
     Indication: EAR INFECTION
     Dosage: 135 MG;PO;QD
     Route: 048
     Dates: start: 20120330, end: 20120403

REACTIONS (1)
  - HYPERHIDROSIS [None]
